FAERS Safety Report 8370916 (Version 2)
Quarter: 2013Q1

REPORT INFORMATION
  Report Type: Report from Study
  Country: US (occurrence: US)
  Receive Date: 20120129
  Receipt Date: 20130129
  Transmission Date: 20140127
  Serious: No
  Sender: FDA-Public Use
  Company Number: US-ABBOTT-11P-163-0872460-00

PATIENT
  Sex: Female

DRUGS (18)
  1. HUMIRA 40 MG/0.8 ML PEN [Suspect]
     Indication: ANKYLOSING SPONDYLITIS
     Route: 058
     Dates: start: 201104, end: 201112
  2. PHENTERMINE [Suspect]
  3. REMICADE [Suspect]
  4. METHOTREXATE [Concomitant]
     Indication: ANKYLOSING SPONDYLITIS
     Dosage: ON THURSDAYS
  5. FOLIC ACID [Concomitant]
     Indication: PRODUCT USED FOR UNKNOWN INDICATION
     Dosage: DAILY
  6. NAPROSYN [Concomitant]
     Indication: PAIN
     Dosage: 1-2 TABS DAILY
  7. HYDROCODONE [Concomitant]
     Indication: PAIN
  8. SUPHEDRINE [Concomitant]
     Indication: PRODUCT USED FOR UNKNOWN INDICATION
  9. ALPRAZOLAM [Concomitant]
     Indication: STRESS
     Dosage: DAILY
  10. ALPRAZOLAM [Concomitant]
     Indication: NERVOUSNESS
  11. PANTOPRAZOLE [Concomitant]
     Indication: DYSPEPSIA
     Dosage: DAILY
  12. VITAMIN B [Concomitant]
     Indication: PRODUCT USED FOR UNKNOWN INDICATION
     Dosage: DAILY
  13. VITAMIN D [Concomitant]
     Indication: PRODUCT USED FOR UNKNOWN INDICATION
     Dosage: DAILY
  14. FISH OIL [Concomitant]
     Indication: PRODUCT USED FOR UNKNOWN INDICATION
  15. PHENTERMINE [Concomitant]
     Indication: WEIGHT DECREASED
     Dosage: DAILY
     Dates: start: 2011
  16. SUDAFED [Concomitant]
     Indication: SINUS DISORDER
     Dosage: DAILY
  17. ORPHENADRINE [Concomitant]
     Indication: PAIN
  18. ECONAZOLE NITRATE CREAM [Concomitant]
     Indication: TINEA PEDIS

REACTIONS (14)
  - Rash [Not Recovered/Not Resolved]
  - Rash erythematous [Not Recovered/Not Resolved]
  - Pain [Not Recovered/Not Resolved]
  - Furuncle [Not Recovered/Not Resolved]
  - Psoriasis [Not Recovered/Not Resolved]
  - Hyperhidrosis [Not Recovered/Not Resolved]
  - Memory impairment [Not Recovered/Not Resolved]
  - Memory impairment [Not Recovered/Not Resolved]
  - Drug ineffective [Unknown]
  - General physical health deterioration [Unknown]
  - Rash [Recovered/Resolved]
  - Rash [Recovered/Resolved]
  - Local swelling [Unknown]
  - Pain in extremity [Unknown]
